FAERS Safety Report 7551338-0 (Version None)
Quarter: 2011Q2

REPORT INFORMATION
  Report Type: 
  Country: None (occurrence: None)
  Receive Date: 20110616
  Receipt Date: 20110531
  Transmission Date: 20111010
  Serious: Yes (Other)
  Sender: FDA-Public Use
  Company Number: US-BAYER-201039893NA

PATIENT
  Age: 42 Year
  Sex: Female
  Weight: 90.703 kg

DRUGS (12)
  1. DEXAMETHASONE [Concomitant]
     Route: 048
  2. PAXIL [Concomitant]
     Route: 046
  3. VERPAMIL HCL [Concomitant]
     Route: 048
  4. AMLODIPINE [Concomitant]
     Route: 048
  5. TORSEMIDE [Concomitant]
     Indication: HYPERTENSION
     Route: 048
  6. METOPROLOL TARTRATE [Concomitant]
     Route: 048
  7. PRAVASTATIN [Concomitant]
     Route: 048
  8. LEVOTHYROXINE SODIUM [Concomitant]
     Route: 048
  9. POTASSIUM CHLORIDE [Concomitant]
     Route: 048
  10. YASMIN [Suspect]
     Indication: CONTRACEPTION
     Dosage: UNK
     Dates: start: 20060208, end: 20070806
  11. HYDROCHLOROTHIAZIDE [Concomitant]
     Indication: HYPERTENSION
     Route: 048
  12. HYDROCODONE [Concomitant]
     Route: 048

REACTIONS (10)
  - PANIC ATTACK [None]
  - CHOLELITHIASIS [None]
  - PULMONARY EMBOLISM [None]
  - CEREBROVASCULAR ACCIDENT [None]
  - HYPERTENSION [None]
  - DEEP VEIN THROMBOSIS [None]
  - HAEMANGIOMA OF LIVER [None]
  - TRANSIENT ISCHAEMIC ATTACK [None]
  - DEPRESSION [None]
  - NERVOUS SYSTEM DISORDER [None]
